FAERS Safety Report 19112035 (Version 1)
Quarter: 2021Q2

REPORT INFORMATION
  Report Type: Spontaneous
  Country: US (occurrence: US)
  Receive Date: 20210409
  Receipt Date: 20210409
  Transmission Date: 20210717
  Serious: Yes (Life-Threatening, Hospitalization)
  Sender: FDA-Public Use
  Company Number: None

PATIENT
  Age: 73 Year
  Sex: Female
  Weight: 137 kg

DRUGS (7)
  1. APIXABAN 5 MG EVERY 12 HRS [Concomitant]
  2. LAMOTRIGINE 100 MG DAILY [Concomitant]
  3. KYPROLIS [Suspect]
     Active Substance: CARFILZOMIB
     Indication: PLASMA CELL MYELOMA
     Dosage: ?          OTHER FREQUENCY:WEEKLY;?
     Route: 042
     Dates: start: 20210325, end: 20210401
  4. METFORMIN 500 MG DAILY [Concomitant]
  5. AMIODARONE 200 MG DAILY [Concomitant]
     Dates: start: 20190506
  6. ACYCLOVIR 400 MG TWICE DAILY [Concomitant]
  7. VENLAFAXINE ER 150 MG DAILY [Concomitant]

REACTIONS (3)
  - Pneumonia [None]
  - Pneumonitis [None]
  - Tachypnoea [None]

NARRATIVE: CASE EVENT DATE: 20210408
